FAERS Safety Report 17353280 (Version 1)
Quarter: 2020Q1

REPORT INFORMATION
  Report Type: Spontaneous
  Country: US (occurrence: US)
  Receive Date: 20200116
  Receipt Date: 20200116
  Transmission Date: 20200409
  Serious: No
  Sender: FDA-Public Use
  Company Number: None

PATIENT

DRUGS (1)
  1. BOTOX [Suspect]
     Active Substance: ONABOTULINUMTOXINA
     Indication: MIGRAINE PROPHYLAXIS
     Dosage: ?          OTHER STRENGTH:200 UNIT;?
     Route: 030
     Dates: start: 201901

REACTIONS (2)
  - Product use issue [None]
  - Off label use [None]

NARRATIVE: CASE EVENT DATE: 20200116
